FAERS Safety Report 10080243 (Version 2)
Quarter: 2014Q2

REPORT INFORMATION
  Report Type: Report from Study
  Country: US (occurrence: US)
  Receive Date: 20140415
  Receipt Date: 20140423
  Transmission Date: 20141212
  Serious: Yes (Other)
  Sender: FDA-Public Use
  Company Number: US-BAXTER-2014BAX018763

PATIENT
  Sex: Male
  Weight: 86 kg

DRUGS (2)
  1. GAMMAGARD S/D [Suspect]
     Indication: BRUTON^S AGAMMAGLOBULINAEMIA
     Dosage: INFUSED OVER 2.5 HOUR
     Route: 042
  2. GAMMAGARD LIQUID [Suspect]
     Indication: BRUTON^S AGAMMAGLOBULINAEMIA
     Dosage: INFUSED OVER 2.5 HOUR
     Route: 042
     Dates: start: 201312

REACTIONS (2)
  - Sinusitis [Recovered/Resolved]
  - Hypertension [Not Recovered/Not Resolved]
